FAERS Safety Report 14312958 (Version 2)
Quarter: 2017Q4

REPORT INFORMATION
  Report Type: Spontaneous
  Country: DE (occurrence: DE)
  Receive Date: 20171221
  Receipt Date: 20171229
  Transmission Date: 20180321
  Serious: Yes (Hospitalization, Other)
  Sender: FDA-Public Use
  Company Number: DE-DRREDDYS-GER/GER/17/0095200

PATIENT
  Age: 76 Year
  Sex: Female

DRUGS (2)
  1. VIPRAMYCIN [Concomitant]
     Indication: BORRELIA INFECTION
     Dates: start: 1997
  2. CIPROFLOXACIN. [Suspect]
     Active Substance: CIPROFLOXACIN
     Indication: PNEUMONIA
     Route: 065
     Dates: start: 20170514

REACTIONS (24)
  - Pyrexia [Unknown]
  - Sleep disorder [Unknown]
  - Decreased appetite [Unknown]
  - Pain [Unknown]
  - Decreased activity [Unknown]
  - Depression [Unknown]
  - Nausea [Unknown]
  - Hyperhidrosis [Unknown]
  - Urinary tract infection [Unknown]
  - Social avoidant behaviour [Unknown]
  - Chest discomfort [Unknown]
  - Intestinal mucosal atrophy [Unknown]
  - Feeling cold [Unknown]
  - Insomnia [Unknown]
  - Fear of death [Unknown]
  - Cough [Unknown]
  - Anxiety [Unknown]
  - Abdominal distension [Unknown]
  - Abdominal pain upper [Unknown]
  - Weight decreased [Unknown]
  - Hypotonia [Unknown]
  - Iritis [Unknown]
  - Adjustment disorder [Unknown]
  - Diarrhoea [Unknown]

NARRATIVE: CASE EVENT DATE: 20170522
